FAERS Safety Report 6126036-0 (Version None)
Quarter: 2009Q1

REPORT INFORMATION
  Report Type: 
  Country: None (occurrence: None)
  Receive Date: 20090320
  Receipt Date: 20090312
  Transmission Date: 20090719
  Serious: Yes (Hospitalization, Other)
  Sender: FDA-Public Use
  Company Number: GB-ROCHE-610925

PATIENT
  Sex: Female
  Weight: 125.4 kg

DRUGS (11)
  1. ORLISTAT [Suspect]
     Indication: OBESITY
     Dosage: WITH MEALS
     Route: 048
     Dates: start: 20081010
  2. METFORMIN HYDROCHLORIDE [Concomitant]
     Route: 048
  3. INDAPAMIDE [Concomitant]
     Route: 048
  4. SIMVASTATIN [Concomitant]
     Dosage: TO BE TAKEN AT NIGHT
     Route: 048
  5. FLUOXETINE HYDROCHLORIDE [Concomitant]
     Route: 048
  6. CANDESARTAN CILEXETIL [Concomitant]
     Route: 048
  7. EZETIMIBE [Concomitant]
     Route: 048
  8. CALMURID [Concomitant]
     Dosage: AS DIRECTED
  9. INSULIN GLARGINE [Concomitant]
     Dosage: 100 UNITS/ML, 3 ML CARTRIDGE AS DIRECTED
  10. FLUTICASONE PROPIONATE INHALER [Concomitant]
     Dosage: 125 MCG/PUFF 2 PUFFS TWICE A DAY
  11. FLUTICASONE/SALMETEROL [Concomitant]
     Dosage: 125 MCG + 25 MCG/ACTUATION 2 PUFFS TWICE A DAY

REACTIONS (9)
  - ASTHMA [None]
  - DELIRIUM [None]
  - DIABETES MELLITUS INADEQUATE CONTROL [None]
  - FATIGUE [None]
  - HYPOGLYCAEMIA [None]
  - ILL-DEFINED DISORDER [None]
  - MALAISE [None]
  - OEDEMA PERIPHERAL [None]
  - RENAL FAILURE ACUTE [None]
